FAERS Safety Report 10363768 (Version 1)
Quarter: 2014Q3

REPORT INFORMATION
  Report Type: Spontaneous
  Country: GB (occurrence: None)
  Receive Date: 20140801
  Receipt Date: 20140801
  Transmission Date: 20150326
  Serious: Yes (Death, Hospitalization)
  Sender: FDA-Public Use
  Company Number: GB-H14001-14-00293

PATIENT
  Age: 58 Year
  Sex: Female

DRUGS (9)
  1. CO-AMOXICLAV [Suspect]
     Active Substance: AMOXICILLIN\CLAVULANIC ACID
     Indication: PRODUCT USED FOR UNKNOWN INDICATION
     Route: 048
     Dates: start: 20120613, end: 20120613
  2. TINZAPARIN SODIUM (TINZAPARIN SODIUM) (UNKNWON) (TINZAPARIN SODIUM) [Concomitant]
  3. FLUCLOXACILLIN (FLUCLOXACILLIN) [Suspect]
     Active Substance: FLUCLOXACILLIN
     Indication: CELLULITIS
     Dosage: 2000 MG (500 MG, 4 IN 1 D), ORAL
     Route: 048
  4. METOCLOPRAMIDE (METOCLOPRAMIDE) (UNKNOWN) (METOCLOPRAMIDE) [Concomitant]
  5. BENDAMUSTINE [Suspect]
     Active Substance: BENDAMUSTINE
     Indication: NON-HODGKIN^S LYMPHOMA
     Dosage: (225 MG, ON DAYS  1 AND 2 OF EACH DAY)
     Dates: start: 20120530, end: 20120531
  6. FLUCLOXACILLIN (FLUCLOXACILLIN) [Suspect]
     Active Substance: FLUCLOXACILLIN
     Indication: OEDEMA PERIPHERAL
     Dosage: 2000 MG (500 MG, 4 IN 1 D), ORAL
     Route: 048
  7. AMITRIPTYLINE (AMITRIPTYLINE) (AMITRIPTYLINE) [Concomitant]
     Active Substance: AMITRIPTYLINE
  8. MAGNESIUM OXIDE (MAGNESIUM OXIDE) (TABLETS) (MAGNESIUM OXIDE) [Concomitant]
  9. BENDAMUSTINE [Suspect]
     Active Substance: BENDAMUSTINE
     Indication: DIFFUSE LARGE B-CELL LYMPHOMA
     Dosage: (225 MG, ON DAYS  1 AND 2 OF EACH DAY)
     Dates: start: 20120530, end: 20120531

REACTIONS (10)
  - Mass [None]
  - Diarrhoea [None]
  - Renal failure [None]
  - Blood calcium decreased [None]
  - Non-Hodgkin^s lymphoma [None]
  - Malignant neoplasm progression [None]
  - Haematocrit decreased [None]
  - Blood magnesium decreased [None]
  - Haemoglobin decreased [None]
  - Cellulitis [None]

NARRATIVE: CASE EVENT DATE: 20120617
